FAERS Safety Report 4360091-3 (Version None)
Quarter: 2004Q2

REPORT INFORMATION
  Report Type: 
  Country: None (occurrence: None)
  Receive Date: 20040514
  Receipt Date: 20040503
  Transmission Date: 20050107
  Serious: Yes (Hospitalization, Other)
  Sender: FDA-Public Use
  Company Number: DE-JNJFOC-20040203682

PATIENT
  Age: 64 Year
  Sex: Female
  Weight: 55 kg

DRUGS (8)
  1. DURAGESIC [Suspect]
     Indication: CANCER PAIN
     Dosage: SEE IMAGE TRANSDERMAL
     Route: 062
     Dates: start: 20040101, end: 20040101
  2. DURAGESIC [Suspect]
     Indication: CANCER PAIN
     Dosage: SEE IMAGE TRANSDERMAL
     Route: 062
     Dates: start: 20040103, end: 20040120
  3. DURAGESIC [Suspect]
     Indication: CANCER PAIN
     Dosage: SEE IMAGE TRANSDERMAL
     Route: 062
     Dates: start: 20031101
  4. DURAGESIC [Suspect]
     Indication: CANCER PAIN
     Dosage: SEE IMAGE TRANSDERMAL
     Route: 062
     Dates: start: 20040127
  5. NOVALGIN (METAMIZOLE SODIUM) DROPS [Concomitant]
  6. AMITRIPTYLINE HCL [Concomitant]
  7. NEURONTIN [Concomitant]
  8. CORTISON (CORTISONE) [Concomitant]

REACTIONS (14)
  - CONDITION AGGRAVATED [None]
  - DRUG INEFFECTIVE [None]
  - FATIGUE [None]
  - GENERAL PHYSICAL HEALTH DETERIORATION [None]
  - METASTASES TO BONE [None]
  - METASTASES TO MENINGES [None]
  - METASTASES TO SPINE [None]
  - MIOSIS [None]
  - NAUSEA [None]
  - OVERDOSE [None]
  - PAIN [None]
  - PLEURAL EFFUSION [None]
  - SOMNOLENCE [None]
  - VOMITING [None]
